FAERS Safety Report 7042499-0 (Version None)
Quarter: 2010Q4

REPORT INFORMATION
  Report Type: 
  Country: None (occurrence: None)
  Receive Date: 20101013
  Receipt Date: 20090828
  Transmission Date: 20110411
  Serious: No
  Sender: FDA-Public Use
  Company Number: US-ASTRAZENECA-2009SE10573

PATIENT
  Age: 779 Month
  Sex: Male
  Weight: 85.3 kg

DRUGS (4)
  1. SYMBICORT [Suspect]
     Indication: SARCOIDOSIS
     Route: 055
     Dates: start: 20090801
  2. EXFORGE [Concomitant]
  3. SPIRIVA [Concomitant]
  4. PREDNISONE [Concomitant]

REACTIONS (3)
  - PAIN IN EXTREMITY [None]
  - PHARYNGITIS [None]
  - SLEEP DISORDER [None]
